FAERS Safety Report 8206260-3 (Version None)
Quarter: 2012Q1

REPORT INFORMATION
  Report Type: 
  Country: None (occurrence: None)
  Receive Date: 20120313
  Receipt Date: 20120312
  Transmission Date: 20120608
  Serious: Yes (Death, Other)
  Sender: FDA-Public Use
  Company Number: PHHY2011AU109665

PATIENT
  Sex: Female

DRUGS (5)
  1. CLINAX [Concomitant]
     Route: 048
     Dates: start: 20101101
  2. OSTEVIT [Concomitant]
     Route: 048
     Dates: start: 20101101
  3. ARIMIDEX [Concomitant]
     Route: 048
     Dates: start: 20101101
  4. ZOLEDRONOC ACID [Suspect]
     Indication: OSTEOPOROSIS
     Dosage: 5 MG, UNK
     Route: 042
     Dates: start: 20101124
  5. ZOCOR [Concomitant]
     Route: 048
     Dates: start: 20101101

REACTIONS (5)
  - OSTEONECROSIS [None]
  - UPPER LIMB FRACTURE [None]
  - INFECTION [None]
  - DEATH [None]
  - FALL [None]
